FAERS Safety Report 13539166 (Version 1)
Quarter: 2017Q2

REPORT INFORMATION
  Report Type: Spontaneous
  Country: TR (occurrence: TR)
  Receive Date: 20170512
  Receipt Date: 20170512
  Transmission Date: 20170830
  Serious: Yes (Hospitalization, Other)
  Sender: FDA-Public Use
  Company Number: TR-ACCORD-051317

PATIENT
  Age: 43 Year
  Sex: Female

DRUGS (2)
  1. FOLINIC ACID [Concomitant]
     Active Substance: LEUCOVORIN
     Indication: GESTATIONAL TROPHOBLASTIC TUMOUR
     Dosage: ON DAYS 2, 4, 6, AND 8
  2. METHOTREXATE. [Suspect]
     Active Substance: METHOTREXATE
     Indication: GESTATIONAL TROPHOBLASTIC TUMOUR
     Dosage: ON DAYS 1, 3, 5, AND 7

REACTIONS (5)
  - Stomatitis [Recovered/Resolved]
  - Candida infection [Unknown]
  - Nausea [Recovered/Resolved]
  - Mouth ulceration [Recovered/Resolved]
  - Fungal skin infection [Unknown]
